FAERS Safety Report 9176780 (Version 1)
Quarter: 2013Q1

REPORT INFORMATION
  Report Type: Spontaneous
  Country: US (occurrence: None)
  Receive Date: 20130320
  Receipt Date: 20130320
  Transmission Date: 20140127
  Serious: Yes (Other)
  Sender: FDA-Public Use
  Company Number: None

PATIENT
  Age: 60 Year
  Sex: Female
  Weight: 66.68 kg

DRUGS (1)
  1. PRISTIQ [Suspect]
     Dates: start: 20130305, end: 20130315

REACTIONS (5)
  - Halo vision [None]
  - Vision blurred [None]
  - Feeling abnormal [None]
  - Somnolence [None]
  - Joint stiffness [None]
